FAERS Safety Report 9336915 (Version 2)
Quarter: 2014Q2

REPORT INFORMATION
  Report Type: Spontaneous
  Country: IT (occurrence: IT)
  Receive Date: 20130607
  Receipt Date: 20140404
  Transmission Date: 20141212
  Serious: Yes (Hospitalization)
  Sender: FDA-Public Use
  Company Number: IT-BRISTOL-MYERS SQUIBB COMPANY-18970368

PATIENT
  Age: 68 Year
  Sex: Female
  Weight: 50 kg

DRUGS (10)
  1. COUMADIN TABS 5 MG [Suspect]
     Route: 048
     Dates: start: 20120401, end: 20130520
  2. MICARDIS [Concomitant]
     Dosage: TAB
     Route: 048
  3. CARDICOR [Concomitant]
     Dosage: 2.5 MG TAB
     Route: 048
  4. CORDARONE [Concomitant]
     Dosage: TAB
     Route: 048
  5. NORVASC [Concomitant]
     Dosage: TAB
     Route: 048
  6. GARDENALE [Concomitant]
     Dosage: TAB
     Route: 048
  7. CRESTOR [Concomitant]
     Dosage: TAB
     Route: 048
  8. PEPTAZOL [Concomitant]
     Dosage: 40MG TAB
     Route: 048
  9. LASIX [Concomitant]
     Dosage: TAB
  10. LEDERFOLINE [Concomitant]
     Dosage: TAB
     Route: 048

REACTIONS (4)
  - Gastrointestinal haemorrhage [Recovering/Resolving]
  - Haematemesis [Recovering/Resolving]
  - Melaena [Recovering/Resolving]
  - Syncope [Recovering/Resolving]
